FAERS Safety Report 6691055-2 (Version None)
Quarter: 2010Q2

REPORT INFORMATION
  Report Type: 
  Country: None (occurrence: None)
  Receive Date: 20100422
  Receipt Date: 20100408
  Transmission Date: 20101027
  Serious: Yes (Other)
  Sender: FDA-Public Use
  Company Number: GB-RANBAXY-2010RR-33078

PATIENT
  Age: 34 Year
  Sex: Female
  Weight: 56.4 kg

DRUGS (7)
  1. GABAPENTIN [Suspect]
     Indication: NEURALGIA
     Dosage: 2.7 G, QD
     Route: 048
     Dates: start: 20090101
  2. TOPIRAMATE [Suspect]
     Indication: INTENTIONAL SELF-INJURY
     Dosage: 700 MG, UNK
     Route: 048
     Dates: start: 20090101
  3. DIAZEPAM [Concomitant]
     Indication: ANXIETY
     Dosage: 12 MG, UNK
     Route: 048
     Dates: start: 20050101
  4. ESCITALOPRAM [Concomitant]
     Indication: OBSESSIVE-COMPULSIVE DISORDER
     Dosage: 50 MG, UNK
     Route: 048
     Dates: start: 20080101
  5. RISPERIDONE [Concomitant]
     Indication: OBSESSIVE-COMPULSIVE DISORDER
     Dosage: 1 MG, UNK
     Route: 048
     Dates: start: 20100301
  6. TRAMADOL HCL [Concomitant]
     Indication: PAIN
     Dosage: 2 G, UNK
     Route: 048
     Dates: start: 20060101
  7. WARFARIN SODIUM [Concomitant]
     Indication: THROMBOSIS
     Dosage: UNK
     Route: 048
     Dates: start: 20080101

REACTIONS (3)
  - FOLATE DEFICIENCY [None]
  - GLOSSODYNIA [None]
  - TONGUE ULCERATION [None]
